FAERS Safety Report 25482146 (Version 5)
Quarter: 2025Q3

REPORT INFORMATION
  Report Type: Spontaneous
  Country: US (occurrence: US)
  Receive Date: 20250626
  Receipt Date: 20250916
  Transmission Date: 20251021
  Serious: Yes (Other)
  Sender: NOVO NORDISK
  Company Number: US-NOVOPROD-1464553

PATIENT
  Age: 12 Year
  Sex: Female
  Weight: 81 kg

DRUGS (1)
  1. WEGOVY [Suspect]
     Active Substance: SEMAGLUTIDE
     Indication: Weight control
     Dosage: 0.25 MG, QW
     Route: 058
     Dates: start: 20250411, end: 20250623

REACTIONS (10)
  - Syncope [Recovered/Resolved]
  - Loss of consciousness [Recovered/Resolved]
  - Fall [Recovered/Resolved]
  - Head injury [Recovered/Resolved]
  - Weight loss poor [Unknown]
  - Nausea [Unknown]
  - Abdominal pain [Unknown]
  - Drug ineffective [Unknown]
  - Alopecia [Unknown]
  - Off label use [Recovered/Resolved]

NARRATIVE: CASE EVENT DATE: 20250501
